FAERS Safety Report 4935873-7 (Version None)
Quarter: 2006Q1

REPORT INFORMATION
  Report Type: 
  Country: None (occurrence: None)
  Receive Date: 20060127
  Receipt Date: 20051117
  Transmission Date: 20060701
  Serious: Yes (Other)
  Sender: FDA-Public Use
  Company Number: 2005160921

PATIENT
  Age: 45 Year
  Sex: Female

DRUGS (2)
  1. LYRICA [Suspect]
     Indication: RADICULOPATHY
     Dosage: 150 MG (75 MG, 2 IN 1 D)
  2. DARVOCET [Concomitant]

REACTIONS (1)
  - PALPITATIONS [None]
